FAERS Safety Report 14821753 (Version 1)
Quarter: 2018Q2

REPORT INFORMATION
  Report Type: Spontaneous
  Country: AU (occurrence: AU)
  Receive Date: 20180427
  Receipt Date: 20180427
  Transmission Date: 20180711
  Serious: Yes (Other)
  Sender: FDA-Public Use
  Company Number: AU-BAYER-2018-077129

PATIENT
  Age: 59 Year

DRUGS (1)
  1. NEXAVAR [Suspect]
     Active Substance: SORAFENIB
     Indication: HEPATOCELLULAR CARCINOMA
     Dosage: DAILY DOSE OF MORE THAN OR EQUAL TO 400 MG
     Route: 048
     Dates: start: 20180328

REACTIONS (1)
  - Hepatocellular carcinoma [None]
